FAERS Safety Report 5557940-X (Version None)
Quarter: 2007Q4

REPORT INFORMATION
  Report Type: 
  Country: None (occurrence: None)
  Receive Date: 20071214
  Receipt Date: 20071204
  Transmission Date: 20080405
  Serious: Yes (Hospitalization)
  Sender: FDA-Public Use
  Company Number: DE-ROCHE-534907

PATIENT
  Age: 63 Year
  Sex: Male
  Weight: 92 kg

DRUGS (1)
  1. CAPECITABINE [Suspect]
     Dosage: PATIENT WAS IN ARM A: 2,500 MG/M2/DAY DIVIDED UP INTO 2 INDIVIDUAL DOSES (1,250 MG/M2 EACH), 2 WEEK+
     Route: 048
     Dates: end: 20071203

REACTIONS (1)
  - CHOLANGITIS [None]
